FAERS Safety Report 17827632 (Version 7)
Quarter: 2020Q4

REPORT INFORMATION
  Report Type: Spontaneous
  Country: ES (occurrence: ES)
  Receive Date: 20200527
  Receipt Date: 20201021
  Transmission Date: 20210113
  Serious: Yes (Hospitalization, Other)
  Sender: FDA-Public Use
  Company Number: ES-ASTELLAS-2020US016775

PATIENT
  Age: 46 Year
  Sex: Female

DRUGS (1)
  1. GILTERITINIB [Suspect]
     Active Substance: GILTERITINIB
     Indication: ACUTE MYELOID LEUKAEMIA
     Dosage: UNK UNK, CYCLIC
     Route: 065
     Dates: start: 20200328, end: 202006

REACTIONS (9)
  - Acute myeloid leukaemia [Unknown]
  - Sepsis [Recovered/Resolved]
  - Hepatotoxicity [Unknown]
  - Drug ineffective [Unknown]
  - Enterobacter infection [Recovered/Resolved]
  - Secondary immunodeficiency [Not Recovered/Not Resolved]
  - Transaminases increased [Not Recovered/Not Resolved]
  - Pneumonia [Recovering/Resolving]
  - Fungal infection [Recovering/Resolving]
